FAERS Safety Report 5787747-X (Version None)
Quarter: 2008Q2

REPORT INFORMATION
  Report Type: 
  Country: None (occurrence: None)
  Receive Date: 20080624
  Receipt Date: 20080624
  Transmission Date: 20081010
  Serious: Yes (Other)
  Sender: FDA-Public Use
  Company Number: None

PATIENT
  Age: 58 Year
  Sex: Female
  Weight: 60.782 kg

DRUGS (4)
  1. SINGULAIR [Suspect]
  2. SYNTHROID [Concomitant]
  3. EVISTA [Concomitant]
  4. VITAMINS [Concomitant]

REACTIONS (3)
  - ANXIETY [None]
  - MIDDLE INSOMNIA [None]
  - THINKING ABNORMAL [None]
